FAERS Safety Report 5388546-3 (Version None)
Quarter: 2007Q3

REPORT INFORMATION
  Report Type: 
  Country: None (occurrence: None)
  Receive Date: 20070716
  Receipt Date: 20070704
  Transmission Date: 20080115
  Serious: Yes (Hospitalization)
  Sender: FDA-Public Use
  Company Number: FR-PFIZER INC-2007033705

PATIENT
  Age: 55 Year
  Sex: Female
  Weight: 82 kg

DRUGS (4)
  1. SALAZOPYRINE [Suspect]
     Indication: MUSCULOSKELETAL PAIN
     Route: 048
     Dates: start: 20070305, end: 20070323
  2. SALAZOPYRINE [Suspect]
     Indication: FIBROMYALGIA
  3. SALAZOPYRINE [Suspect]
     Indication: MYALGIA
  4. PRETERAX [Concomitant]
     Indication: ESSENTIAL HYPERTENSION
     Route: 048

REACTIONS (5)
  - HEADACHE [None]
  - MENINGITIS [None]
  - MYALGIA [None]
  - PHOTOPHOBIA [None]
  - PYREXIA [None]
